FAERS Safety Report 6402998-9 (Version None)
Quarter: 2009Q4

REPORT INFORMATION
  Report Type: 
  Country: None (occurrence: None)
  Receive Date: 20091008
  Receipt Date: 20090626
  Transmission Date: 20100525
  Serious: Yes (Other)
  Sender: FDA-Public Use
  Company Number: 1000003516

PATIENT
  Age: 53 Year
  Sex: Female

DRUGS (6)
  1. CAMPRAL [Suspect]
     Indication: ALCOHOLISM
     Dosage: 1332 MG (666 MG, 2 IN 1 D), ORAL
     Route: 048
     Dates: start: 20081216
  2. TRAZODONE HCL [Concomitant]
  3. PAXIL [Concomitant]
  4. KLONOPIN [Concomitant]
  5. AUGMENTIN [Concomitant]
  6. OMEPRAZOLE [Concomitant]

REACTIONS (21)
  - ABDOMINAL PAIN [None]
  - AMNESIA [None]
  - ANXIETY [None]
  - ARTHRALGIA [None]
  - ASTHENIA [None]
  - BACK PAIN [None]
  - CHILLS [None]
  - CONSTIPATION [None]
  - DECREASED APPETITE [None]
  - DEPRESSION [None]
  - DIZZINESS [None]
  - DRY MOUTH [None]
  - DYSGEUSIA [None]
  - HALLUCINATION, VISUAL [None]
  - HEADACHE [None]
  - INSOMNIA [None]
  - LETHARGY [None]
  - MUSCULAR WEAKNESS [None]
  - MYALGIA [None]
  - NAUSEA [None]
  - SUICIDAL IDEATION [None]
